FAERS Safety Report 13468370 (Version 3)
Quarter: 2017Q4

REPORT INFORMATION
  Report Type: Report from Study
  Country: BE (occurrence: BE)
  Receive Date: 20170421
  Receipt Date: 20171026
  Transmission Date: 20180320
  Serious: Yes (Other)
  Sender: FDA-Public Use
  Company Number: BE-SA-2017SA067500

PATIENT
  Age: 54 Year
  Sex: Female

DRUGS (1)
  1. LEMTRADA [Suspect]
     Active Substance: ALEMTUZUMAB
     Route: 041
     Dates: end: 20160118

REACTIONS (7)
  - Uterine polyp [Unknown]
  - Night sweats [Not Recovered/Not Resolved]
  - Hyperhidrosis [Unknown]
  - Pruritus [Unknown]
  - Cystitis noninfective [Unknown]
  - Tremor [Unknown]
  - Oedema peripheral [Unknown]

NARRATIVE: CASE EVENT DATE: 20170412
